FAERS Safety Report 11513971 (Version 1)
Quarter: 2015Q3

REPORT INFORMATION
  Report Type: Spontaneous
  Country: ES (occurrence: ES)
  Receive Date: 20150916
  Receipt Date: 20150916
  Transmission Date: 20151125
  Serious: Yes (Hospitalization)
  Sender: FDA-Public Use
  Company Number: PHHY2015ES108207

PATIENT
  Age: 59 Year
  Sex: Male

DRUGS (10)
  1. METFORMINA//METFORMIN [Concomitant]
     Indication: TYPE 2 DIABETES MELLITUS
     Dosage: 2550 MG, QID
     Route: 048
     Dates: start: 2004
  2. SIMVASTATIN. [Concomitant]
     Active Substance: SIMVASTATIN
     Indication: DYSLIPIDAEMIA
     Dosage: 20 MG, UNK
     Route: 048
     Dates: start: 2004
  3. CYANOCOBALAMIN. [Concomitant]
     Active Substance: CYANOCOBALAMIN
     Indication: PRODUCT USED FOR UNKNOWN INDICATION
     Dosage: UNK
     Route: 030
     Dates: start: 20140901
  4. TARDYFERON [Concomitant]
     Active Substance: FERROUS SULFATE\FOLIC ACID
     Indication: ANAEMIA
     Dosage: 80 MG, UNK
     Route: 048
     Dates: start: 20140901
  5. OMEPRAZOLE. [Concomitant]
     Active Substance: OMEPRAZOLE
     Indication: PROPHYLAXIS AGAINST GASTROINTESTINAL ULCER
     Dosage: 20 MG, UNK
     Route: 048
     Dates: start: 2008
  6. SINTROM [Interacting]
     Active Substance: ACENOCOUMAROL
     Indication: ATRIAL FLUTTER
     Dosage: UNK
     Route: 048
     Dates: start: 20140913, end: 20140916
  7. IBUPROFENO [Suspect]
     Active Substance: IBUPROFEN
     Indication: PERICARDITIS
     Dosage: 1400 MG, QID
     Route: 048
     Dates: start: 20140910, end: 20140916
  8. CLEXANE [Interacting]
     Active Substance: ENOXAPARIN SODIUM
     Indication: ATRIAL FLUTTER
     Dosage: 200 MG, BID
     Route: 058
     Dates: start: 20140910, end: 20140916
  9. INSULINE GLARGINE [Concomitant]
     Indication: TYPE 2 DIABETES MELLITUS
     Dosage: 38 IU, UNK
     Route: 058
     Dates: start: 2012
  10. IRBESARTAN. [Concomitant]
     Active Substance: IRBESARTAN
     Indication: HYPERTENSION
     Dosage: 150 MG, UNK
     Route: 048
     Dates: start: 2004

REACTIONS (3)
  - Pericardial haemorrhage [Recovered/Resolved]
  - Hypocoagulable state [Recovered/Resolved]
  - Drug interaction [Unknown]

NARRATIVE: CASE EVENT DATE: 20140916
